FAERS Safety Report 9028726 (Version 4)
Quarter: 2013Q3

REPORT INFORMATION
  Report Type: Spontaneous
  Country: US (occurrence: US)
  Receive Date: 20130124
  Receipt Date: 20130705
  Transmission Date: 20140515
  Serious: Yes (Hospitalization, Disabling, Other)
  Sender: FDA-Public Use
  Company Number: US-009507513-1301USA010920

PATIENT
  Sex: Female

DRUGS (6)
  1. FOSAMAX [Suspect]
     Indication: OSTEOPOROSIS
     Dosage: 70 MG, QW
     Route: 048
     Dates: start: 2006, end: 200809
  2. ALENDRONATE SODIUM [Suspect]
     Indication: OSTEOPOROSIS
     Dosage: 70 MG, QW
     Route: 048
     Dates: start: 200810, end: 201106
  3. CENTRUM (MINERALS (UNSPECIFIED) (+) VITAMINS (UNSPECIFIED)) [Concomitant]
     Dosage: UNK, QD
     Dates: start: 2008
  4. OMEGA-3 MARINE TRIGLYCERIDES [Concomitant]
     Dosage: 1200 MG, BID
     Dates: start: 2008
  5. CALCIUM D3 [Concomitant]
     Dosage: 600 MG, QD
     Dates: start: 2009
  6. PRILOSEC [Concomitant]
     Dosage: UNK
     Dates: start: 2008

REACTIONS (9)
  - Femur fracture [Unknown]
  - Intramedullary rod insertion [Unknown]
  - Tendonitis [Unknown]
  - Glucose tolerance impaired [Unknown]
  - Muscle strain [Unknown]
  - Muscle strain [Unknown]
  - Road traffic accident [Unknown]
  - Hypertension [Unknown]
  - Blood cholesterol increased [Unknown]
